FAERS Safety Report 9825505 (Version 3)
Quarter: 2015Q1

REPORT INFORMATION
  Report Type: Spontaneous
  Country: US (occurrence: US)
  Receive Date: 20140117
  Receipt Date: 20150303
  Transmission Date: 20150721
  Serious: No
  Sender: FDA-Public Use
  Company Number: US-PFIZER INC-2014015457

PATIENT
  Age: 84 Year
  Sex: Female
  Weight: 63.9 kg

DRUGS (2)
  1. LYRICA [Suspect]
     Active Substance: PREGABALIN
     Dosage: UNK
     Dates: start: 2013
  2. LYRICA [Suspect]
     Active Substance: PREGABALIN
     Dosage: UNK, 3X/DAY
     Dates: start: 20150217

REACTIONS (8)
  - Petechiae [Unknown]
  - Malaise [Unknown]
  - Weight decreased [Unknown]
  - Skin discolouration [Unknown]
  - Alopecia [Not Recovered/Not Resolved]
  - Product colour issue [Unknown]
  - Local swelling [Not Recovered/Not Resolved]
  - Skin disorder [Not Recovered/Not Resolved]
